FAERS Safety Report 23573500 (Version 5)
Quarter: 2024Q3

REPORT INFORMATION
  Report Type: Spontaneous
  Country: US (occurrence: US)
  Receive Date: 20240228
  Receipt Date: 20240728
  Transmission Date: 20241016
  Serious: Yes (Other)
  Sender: SANOFI AVENTIS
  Company Number: US-SANOFI-01952467

PATIENT
  Age: 46 Year
  Sex: Male

DRUGS (1)
  1. ADMELOG [Suspect]
     Active Substance: INSULIN LISPRO
     Indication: Type 1 diabetes mellitus
     Dosage: SLIDING SCALE
     Route: 065

REACTIONS (8)
  - Ketoacidosis [Unknown]
  - Condition aggravated [Unknown]
  - Gait disturbance [Unknown]
  - Blood glucose increased [Unknown]
  - Drug ineffective [Unknown]
  - Intentional product use issue [Unknown]
  - Liquid product physical issue [Unknown]
  - Poor quality product administered [Unknown]

NARRATIVE: CASE EVENT DATE: 20240101
